FAERS Safety Report 19751925 (Version 1)
Quarter: 2021Q3

REPORT INFORMATION
  Report Type: Spontaneous
  Country: US (occurrence: US)
  Receive Date: 20210827
  Receipt Date: 20210827
  Transmission Date: 20211014
  Serious: Yes (Other)
  Sender: FDA-Public Use
  Company Number: US-HIKMA PHARMACEUTICALS USA INC.-US-H14001-21-03740

PATIENT
  Sex: Female

DRUGS (2)
  1. DESVENLAFAXINE. [Suspect]
     Active Substance: DESVENLAFAXINE
     Route: 048
     Dates: start: 202108
  2. DESVENLAFAXINE. [Suspect]
     Active Substance: DESVENLAFAXINE
     Indication: BIPOLAR I DISORDER
     Route: 048
     Dates: start: 202106

REACTIONS (6)
  - Amnesia [Unknown]
  - Immunodeficiency [Unknown]
  - Depression [Unknown]
  - Aggression [Unknown]
  - Product dose omission issue [Unknown]
  - Anger [Unknown]
